FAERS Safety Report 6793346-3 (Version None)
Quarter: 2010Q2

REPORT INFORMATION
  Report Type: 
  Country: None (occurrence: None)
  Receive Date: 20100624
  Receipt Date: 20100203
  Transmission Date: 20101027
  Serious: Yes (Other)
  Sender: FDA-Public Use
  Company Number: US-MYLANLABS-2009S1021522

PATIENT
  Age: 43 Year
  Sex: Male
  Weight: 96.16 kg

DRUGS (11)
  1. CLOZAPINE [Suspect]
     Indication: SCHIZOAFFECTIVE DISORDER
     Route: 048
     Dates: end: 20091210
  2. COGENTIN [Concomitant]
     Indication: EXTRAPYRAMIDAL DISORDER
     Route: 048
  3. KLONOPIN [Concomitant]
     Indication: AGITATION
     Route: 048
  4. LITHIUM CARBONATE [Concomitant]
     Route: 048
  5. SYNTHROID [Concomitant]
     Route: 048
  6. LOXAPINE [Concomitant]
     Indication: PSYCHOTIC DISORDER
     Route: 048
  7. TRILEPTAL [Concomitant]
     Route: 048
  8. BACITRACIN [Concomitant]
     Route: 061
  9. BENADRYL [Concomitant]
     Indication: EXTRAPYRAMIDAL DISORDER
     Route: 061
  10. TRICLOSAN [Concomitant]
     Dosage: FOR BATHING AND WASHING
  11. SENOKOT [Concomitant]
     Route: 048

REACTIONS (2)
  - GRANULOCYTOPENIA [None]
  - LEUKOPENIA [None]
